FAERS Safety Report 9466193 (Version 1)
Quarter: 2013Q3

REPORT INFORMATION
  Report Type: Spontaneous
  Country: US (occurrence: None)
  Receive Date: 20130816
  Receipt Date: 20130816
  Transmission Date: 20140515
  Serious: Yes (Hospitalization, Disabling, Other)
  Sender: FDA-Public Use
  Company Number: None

PATIENT
  Age: 40 Year
  Sex: Female
  Weight: 65.77 kg

DRUGS (2)
  1. AVELOX [Suspect]
     Indication: NASOPHARYNGITIS
     Dosage: ONE PILL  ONCE DAILY  TAKEN BY MOUTH
     Route: 048
     Dates: start: 20070420, end: 20070427
  2. AVELOX [Suspect]
     Indication: STREPTOCOCCAL INFECTION
     Dosage: ONE PILL  ONCE DAILY  TAKEN BY MOUTH
     Route: 048
     Dates: start: 20070420, end: 20070427

REACTIONS (37)
  - Impaired work ability [None]
  - Dysstasia [None]
  - Pain [None]
  - Sensory disturbance [None]
  - Muscular weakness [None]
  - Feeling abnormal [None]
  - Neurological symptom [None]
  - Asthenia [None]
  - Abasia [None]
  - Neuropathy peripheral [None]
  - Myalgia [None]
  - Muscle twitching [None]
  - Balance disorder [None]
  - Coordination abnormal [None]
  - Vitreous floaters [None]
  - Eye pain [None]
  - Visual impairment [None]
  - Headache [None]
  - Arthralgia [None]
  - Feeling abnormal [None]
  - Dysphemia [None]
  - Memory impairment [None]
  - Cognitive disorder [None]
  - Slow speech [None]
  - Photosensitivity reaction [None]
  - Hyperaesthesia [None]
  - Insomnia [None]
  - Haemorrhagic diathesis [None]
  - Impaired healing [None]
  - Autoimmune thyroiditis [None]
  - Hypothyroidism [None]
  - Skin wrinkling [None]
  - Dry skin [None]
  - Fatigue [None]
  - Disturbance in attention [None]
  - Pain of skin [None]
  - Quality of life decreased [None]
